FAERS Safety Report 8142739-0 (Version None)
Quarter: 2012Q1

REPORT INFORMATION
  Report Type: 
  Country: None (occurrence: None)
  Receive Date: 20120216
  Receipt Date: 20120208
  Transmission Date: 20120608
  Serious: Yes (Hospitalization)
  Sender: FDA-Public Use
  Company Number: US-ASTRAZENECA-2010SE16712

PATIENT
  Age: 74 Year
  Sex: Male

DRUGS (1)
  1. NEXIUM [Suspect]
     Route: 048
     Dates: start: 20090101

REACTIONS (8)
  - ASTHENIA [None]
  - GASTRITIS [None]
  - MALAISE [None]
  - ABDOMINAL PAIN UPPER [None]
  - BRONCHITIS [None]
  - PNEUMONIA [None]
  - ULCER [None]
  - DRUG DOSE OMISSION [None]
